FAERS Safety Report 17834233 (Version 1)
Quarter: 2020Q2

REPORT INFORMATION
  Report Type: Spontaneous
  Country: US (occurrence: US)
  Receive Date: 20200527
  Receipt Date: 20200527
  Transmission Date: 20200714
  Serious: No
  Sender: FDA-Public Use
  Company Number: None

PATIENT
  Age: 33 Year
  Sex: Male

DRUGS (1)
  1. TACROLIMUS CAP 0.5MG [Suspect]
     Active Substance: TACROLIMUS
     Route: 048
     Dates: start: 20200118

REACTIONS (2)
  - Full blood count decreased [None]
  - Product substitution issue [None]

NARRATIVE: CASE EVENT DATE: 20200527
